FAERS Safety Report 4547310-5 (Version None)
Quarter: 2005Q1

REPORT INFORMATION
  Report Type: 
  Country: None (occurrence: None)
  Receive Date: 20050105
  Receipt Date: 20041217
  Transmission Date: 20050727
  Serious: No
  Sender: FDA-Public Use
  Company Number: USA041286502

PATIENT
  Age: 53 Year
  Sex: Male
  Weight: 101 kg

DRUGS (1)
  1. STRATTERA [Suspect]
     Dates: start: 20041001

REACTIONS (3)
  - BACK PAIN [None]
  - CHROMATURIA [None]
  - PRURITUS [None]
